FAERS Safety Report 15214922 (Version 2)
Quarter: 2018Q3

REPORT INFORMATION
  Report Type: Spontaneous
  Country: FR (occurrence: FR)
  Receive Date: 20180730
  Receipt Date: 20180817
  Transmission Date: 20181010
  Serious: Yes (Hospitalization, Other)
  Sender: FDA-Public Use
  Company Number: FR-SA-2018SA198946

PATIENT
  Age: 69 Year
  Sex: Female

DRUGS (6)
  1. RIFAMPICIN [Suspect]
     Active Substance: RIFAMPIN
     Dosage: 600 MG
  2. ISONIAZID. [Suspect]
     Active Substance: ISONIAZID
     Indication: PERITONEAL TUBERCULOSIS
     Dosage: 12 MG/KG, QD
  3. SINTROM [Concomitant]
     Active Substance: ACENOCOUMAROL
  4. ISONIAZID. [Suspect]
     Active Substance: ISONIAZID
     Dosage: 300 MG
  5. RIFAMPICIN [Suspect]
     Active Substance: RIFAMPIN
     Indication: PERITONEAL TUBERCULOSIS
     Dosage: 12 MG/KG, QD
  6. PAPAVERINE [Concomitant]
     Active Substance: PAPAVERINE

REACTIONS (6)
  - Transaminases increased [Unknown]
  - Coagulation factor decreased [Unknown]
  - Hepatitis cholestatic [Unknown]
  - Total bile acids increased [Unknown]
  - Jaundice [Unknown]
  - Bilirubin conjugated increased [Unknown]
